FAERS Safety Report 15339938 (Version 2)
Quarter: 2019Q1

REPORT INFORMATION
  Report Type: Report from Study
  Country: US (occurrence: US)
  Receive Date: 20180831
  Receipt Date: 20190107
  Transmission Date: 20190417
  Serious: No
  Sender: FDA-Public Use
  Company Number: PHEH2018US036064

PATIENT
  Age: 63 Year
  Sex: Female

DRUGS (1)
  1. GILENYA [Suspect]
     Active Substance: FINGOLIMOD HYDROCHLORIDE
     Indication: PRODUCT USED FOR UNKNOWN INDICATION
     Dosage: UNK
     Route: 065
     Dates: start: 20170720

REACTIONS (5)
  - Temperature intolerance [Unknown]
  - Exostosis [Unknown]
  - Fatigue [Unknown]
  - Influenza [Unknown]
  - Sinusitis [Unknown]

NARRATIVE: CASE EVENT DATE: 20170820
